FAERS Safety Report 7469771-4 (Version None)
Quarter: 2011Q2

REPORT INFORMATION
  Report Type: 
  Country: None (occurrence: None)
  Receive Date: 20110510
  Receipt Date: 20110502
  Transmission Date: 20111010
  Serious: Yes (Death)
  Sender: FDA-Public Use
  Company Number: US-TEVA-279029USA

PATIENT
  Age: 88 Year
  Sex: Male

DRUGS (2)
  1. TAMSULOSIN HCL [Suspect]
     Dosage: .4 MILLIGRAM; BEFORE BED
  2. DUTASTERIDE [Concomitant]
     Dosage: .5 MILLIGRAM;

REACTIONS (1)
  - ARRHYTHMIA [None]
